FAERS Safety Report 6639240-X (Version None)
Quarter: 2010Q1

REPORT INFORMATION
  Report Type: 
  Country: None (occurrence: None)
  Receive Date: 20100315
  Receipt Date: 20100225
  Transmission Date: 20100710
  Serious: Yes (Death)
  Sender: FDA-Public Use
  Company Number: 2010VX000118

PATIENT
  Age: 22 Year
  Sex: Female

DRUGS (3)
  1. BUTALBITAL [Suspect]
     Indication: DRUG USE FOR UNKNOWN INDICATION
  2. ALPRAZOLAM [Suspect]
     Indication: DRUG USE FOR UNKNOWN INDICATION
  3. HYDROCODONE BITARTRATE AND ACETAMINOPHEN [Suspect]
     Indication: DRUG USE FOR UNKNOWN INDICATION

REACTIONS (11)
  - ATRIOVENTRICULAR BLOCK [None]
  - BRAIN DEATH [None]
  - CEREBROVASCULAR ACCIDENT [None]
  - HYPOTENSION [None]
  - HYPOXIA [None]
  - INCORRECT DOSE ADMINISTERED [None]
  - PNEUMONIA ASPIRATION [None]
  - POISONING [None]
  - PUPILS UNEQUAL [None]
  - TACHYCARDIA [None]
  - UNRESPONSIVE TO STIMULI [None]
